FAERS Safety Report 4638224-0 (Version None)
Quarter: 2005Q2

REPORT INFORMATION
  Report Type: 
  Country: None (occurrence: None)
  Receive Date: 20050418
  Receipt Date: 20050324
  Transmission Date: 20051028
  Serious: Yes (Other)
  Sender: FDA-Public Use
  Company Number: USA050394044

PATIENT
  Age: 66 Year
  Sex: Female
  Weight: 63 kg

DRUGS (7)
  1. FORTEO [Suspect]
     Indication: OSTEOPOROSIS
     Dosage: 20 UG/1 DAY
     Dates: start: 20041201, end: 20050101
  2. NEURONTIN [Concomitant]
  3. PAXIL [Concomitant]
  4. PLAVIX [Concomitant]
  5. ASPIRIN [Concomitant]
  6. PREMARIN [Concomitant]
  7. NEXIUM [Concomitant]

REACTIONS (9)
  - BACK PAIN [None]
  - CONTUSION [None]
  - FACE INJURY [None]
  - FALL [None]
  - HEAD INJURY [None]
  - MECHANICAL COMPLICATION OF IMPLANT [None]
  - MEDICAL DEVICE COMPLICATION [None]
  - PAIN [None]
  - PELVIC FRACTURE [None]
